FAERS Safety Report 9200833 (Version 1)
Quarter: 2013Q1

REPORT INFORMATION
  Report Type: Spontaneous
  Country: US (occurrence: None)
  Receive Date: 20130328
  Receipt Date: 20130328
  Transmission Date: 20140127
  Serious: Yes (Life-Threatening, Hospitalization)
  Sender: FDA-Public Use
  Company Number: None

PATIENT
  Age: 73 Year
  Sex: Male
  Weight: 85.3 kg

DRUGS (1)
  1. AZITHROMYCIN [Suspect]
     Indication: UPPER RESPIRATORY TRACT INFECTION
     Route: 048
     Dates: start: 20130202, end: 20130202

REACTIONS (8)
  - Dyspnoea [None]
  - Chest pain [None]
  - Ventricular tachycardia [None]
  - Torsade de pointes [None]
  - Ventricular fibrillation [None]
  - Electrocardiogram QT prolonged [None]
  - Blood potassium decreased [None]
  - Atrial fibrillation [None]
